FAERS Safety Report 15395487 (Version 1)
Quarter: 2018Q3

REPORT INFORMATION
  Report Type: Spontaneous
  Country: US (occurrence: US)
  Receive Date: 20180911
  Receipt Date: 20180911
  Transmission Date: 20181010
  Serious: Yes (Life-Threatening, Disabling, Other)
  Sender: FDA-Public Use
  Company Number: None

PATIENT
  Age: 57 Year
  Sex: Female
  Weight: 70.31 kg

DRUGS (1)
  1. MRI WITH GADOLINIUM CONTRAST [Suspect]
     Active Substance: GADOLINIUM

REACTIONS (9)
  - Skin texture abnormal [None]
  - Nephropathy [None]
  - Blood heavy metal increased [None]
  - Feeding disorder [None]
  - Dementia [None]
  - Feeling abnormal [None]
  - Loss of personal independence in daily activities [None]
  - Injection site pain [None]
  - Skin burning sensation [None]

NARRATIVE: CASE EVENT DATE: 20180406
